FAERS Safety Report 13883906 (Version 1)
Quarter: 2017Q3

REPORT INFORMATION
  Report Type: Spontaneous
  Country: US (occurrence: US)
  Receive Date: 20170818
  Receipt Date: 20170818
  Transmission Date: 20171127
  Serious: No
  Sender: FDA-Public Use
  Company Number: None

PATIENT
  Age: 64 Year
  Sex: Female
  Weight: 81 kg

DRUGS (7)
  1. BUPROPRION [Concomitant]
     Active Substance: BUPROPION
  2. DEPLIN [Concomitant]
     Active Substance: LEVOMEFOLATE CALCIUM
  3. ECOTRIN [Concomitant]
     Active Substance: ASPIRIN
  4. METOPROLOL. [Concomitant]
     Active Substance: METOPROLOL
  5. HYDROXIZINE HCL 50 MG [Suspect]
     Active Substance: HYDROXYZINE HYDROCHLORIDE
     Indication: CHRONIC SPONTANEOUS URTICARIA
     Dosage: ?          QUANTITY:30 ;?
     Route: 048
     Dates: start: 20170812, end: 20170818
  6. DULOXETINE. [Concomitant]
     Active Substance: DULOXETINE
  7. PRILOSEC [Concomitant]
     Active Substance: OMEPRAZOLE MAGNESIUM

REACTIONS (3)
  - Gastrooesophageal reflux disease [None]
  - Feeling abnormal [None]
  - Product substitution issue [None]

NARRATIVE: CASE EVENT DATE: 20170815
